FAERS Safety Report 20090240 (Version 2)
Quarter: 2021Q4

REPORT INFORMATION
  Report Type: Spontaneous
  Country: BE (occurrence: BE)
  Receive Date: 20211119
  Receipt Date: 20211215
  Transmission Date: 20220303
  Serious: Yes (Hospitalization)
  Sender: FDA-Public Use
  Company Number: BE-TAKEDA-2021TUS070990

PATIENT

DRUGS (1)
  1. NINLARO [Suspect]
     Active Substance: IXAZOMIB CITRATE
     Indication: Product used for unknown indication
     Dosage: 3 MILLIGRAM, 1/WEEK
     Route: 065

REACTIONS (2)
  - Hospitalisation [Unknown]
  - Product packaging quantity issue [Unknown]
